FAERS Safety Report 8120210-X (Version None)
Quarter: 2012Q1

REPORT INFORMATION
  Report Type: 
  Country: None (occurrence: None)
  Receive Date: 20120207
  Receipt Date: 20120202
  Transmission Date: 20120608
  Serious: Yes (Hospitalization)
  Sender: FDA-Public Use
  Company Number: PHHY2012NL002201

PATIENT
  Sex: Male
  Weight: 117 kg

DRUGS (12)
  1. ZOMETA [Suspect]
     Dosage: 4 MG/100 ML, PER 28 DAYS
     Dates: start: 20110802
  2. VERAPAMIL [Concomitant]
     Dosage: 120
  3. ZOMETA [Suspect]
     Indication: METASTASES TO BONE
     Dosage: 4 MG/100 ML, PER 28 DAYS
     Route: 042
     Dates: start: 20110324
  4. LANOXIN [Concomitant]
     Dosage: 0.125
  5. SIMVASTATIN [Concomitant]
     Dosage: 20
  6. ZOMETA [Suspect]
     Dosage: 4 MG/100 ML, PER 28 DAYS
     Route: 042
     Dates: start: 20111213
  7. ACENOCOUMAROL [Concomitant]
  8. PANTOPRAZOLE [Concomitant]
     Dosage: 40
  9. BUMETANIDE [Concomitant]
     Dosage: 2 X 1
  10. ZOMETA [Suspect]
     Dosage: 4 MG/100 ML, PER 28 DAYS
     Route: 042
     Dates: start: 20120111
  11. GOSERELIN [Concomitant]
     Dosage: 10.8
  12. BECLOMETHASONE DIPROPIONATE [Concomitant]

REACTIONS (3)
  - DYSPNOEA [None]
  - PYREXIA [None]
  - PNEUMONIA [None]
